FAERS Safety Report 4588708-9 (Version None)
Quarter: 2005Q1

REPORT INFORMATION
  Report Type: 
  Country: None (occurrence: None)
  Receive Date: 20050216
  Receipt Date: 20050204
  Transmission Date: 20050727
  Serious: Yes (Hospitalization, Other)
  Sender: FDA-Public Use
  Company Number: US_031098485

PATIENT
  Age: 55 Year
  Sex: Male
  Weight: 200 kg

DRUGS (17)
  1. HUMATROPE [Suspect]
     Indication: GROWTH HORMONE DEFICIENCY
     Dosage: 0.43 U AT BEDTIME
     Dates: start: 20020201
  2. ANDRODERM [Concomitant]
  3. SYNTHROID [Concomitant]
  4. LIPITOR [Concomitant]
  5. ZOLOFT [Concomitant]
  6. CARDIZEM [Concomitant]
  7. PREDNISONE [Concomitant]
  8. HYDROCORTISONE [Concomitant]
  9. DIOVAN [Concomitant]
  10. LASIX [Concomitant]
  11. PRAVACHOL [Concomitant]
  12. MONOPRIL [Concomitant]
  13. BUMEX [Concomitant]
  14. PEPCID [Concomitant]
  15. NYSTATIN [Concomitant]
  16. AMPHOJEL (ALUMINIUM HYDROXIDE GEL) [Concomitant]
  17. XANAX (ALPRAZOLAM DUM) [Concomitant]

REACTIONS (49)
  - ANAEMIA [None]
  - ASTHENIA [None]
  - BLOOD BICARBONATE INCREASED [None]
  - BLOOD CHLORIDE DECREASED [None]
  - BLOOD PRESSURE INCREASED [None]
  - BLOOD URINE PRESENT [None]
  - CARDIAC FAILURE CONGESTIVE [None]
  - CARDIOMEGALY [None]
  - CELLULITIS [None]
  - CLOSTRIDIAL INFECTION [None]
  - COLONIC POLYP [None]
  - CONDITION AGGRAVATED [None]
  - DEPRESSED MOOD [None]
  - DIABETES MELLITUS NON-INSULIN-DEPENDENT [None]
  - DIALYSIS [None]
  - DIFFICULTY IN WALKING [None]
  - DIVERTICULUM INTESTINAL [None]
  - DUODENITIS [None]
  - DYSPNOEA [None]
  - EROSIVE OESOPHAGITIS [None]
  - FLUID OVERLOAD [None]
  - GAIT DISTURBANCE [None]
  - GASTRITIS [None]
  - GASTROINTESTINAL HAEMORRHAGE [None]
  - HAEMORRHOIDS [None]
  - HYPERCAPNIA [None]
  - HYPOKALAEMIA [None]
  - HYPOXIA [None]
  - LUNG INFECTION PSEUDOMONAL [None]
  - LUNG INFILTRATION [None]
  - OEDEMA PERIPHERAL [None]
  - OXYGEN SATURATION DECREASED [None]
  - PALLOR [None]
  - PERIPHERAL ARTERY ANEURYSM [None]
  - PICKWICKIAN SYNDROME [None]
  - PNEUMONIA [None]
  - PNEUMONIA STAPHYLOCOCCAL [None]
  - PRODUCTIVE COUGH [None]
  - PROTEIN URINE PRESENT [None]
  - RENAL FAILURE [None]
  - RENAL FAILURE ACUTE [None]
  - RENAL TUBULAR NECROSIS [None]
  - RESPIRATORY RATE INCREASED [None]
  - RESTRICTIVE PULMONARY DISEASE [None]
  - SHOCK [None]
  - SKIN ULCER [None]
  - STASIS DERMATITIS [None]
  - UPPER RESPIRATORY TRACT INFECTION [None]
  - VENOUS STASIS [None]
